FAERS Safety Report 14181639 (Version 1)
Quarter: 2017Q4

REPORT INFORMATION
  Report Type: Spontaneous
  Country: US (occurrence: None)
  Receive Date: 20171110
  Receipt Date: 20171110
  Transmission Date: 20180321
  Serious: Yes (Other)
  Sender: FDA-Public Use
  Company Number: None

PATIENT
  Age: 67 Year
  Sex: Male
  Weight: 84.6 kg

DRUGS (2)
  1. NIVOLUMAB 3MG/KG [Suspect]
     Active Substance: NIVOLUMAB
     Indication: MALIGNANT MELANOMA
     Route: 042
     Dates: start: 20170713, end: 20171005
  2. IPILIMUMAB 1 MG/KG [Suspect]
     Active Substance: IPILIMUMAB
     Indication: MALIGNANT MELANOMA
     Dosage: 84 MG Q 6 WEEKS IV
     Route: 042
     Dates: start: 20170713, end: 20171005

REACTIONS (2)
  - Hepatitis [None]
  - Immune system disorder [None]

NARRATIVE: CASE EVENT DATE: 20171019
